FAERS Safety Report 9093870 (Version 1)
Quarter: 2013Q1

REPORT INFORMATION
  Report Type: Report from Study
  Country: US (occurrence: US)
  Receive Date: 20130131
  Receipt Date: 20130131
  Transmission Date: 20140127
  Serious: No
  Sender: FDA-Public Use
  Company Number: US-ABBOTT-12P-163-1013924-00

PATIENT
  Age: 56 Year
  Sex: Female

DRUGS (5)
  1. HUMIRA [Suspect]
     Indication: PSORIASIS
     Dates: start: 20121107
  2. HUMIRA [Suspect]
     Dates: start: 20121121
  3. FOLIC ACID [Concomitant]
     Indication: PRODUCT USED FOR UNKNOWN INDICATION
  4. ALBUTEROL [Concomitant]
     Indication: ASTHMA
     Route: 055
  5. MUSCLE RELAXER [Concomitant]
     Indication: CEREBRAL PALSY

REACTIONS (2)
  - Application site pain [Unknown]
  - Injection site haemorrhage [Unknown]
